FAERS Safety Report 5569370-5 (Version None)
Quarter: 2007Q4

REPORT INFORMATION
  Report Type: 
  Country: None (occurrence: None)
  Receive Date: 20071220
  Receipt Date: 20071220
  Transmission Date: 20080405
  Serious: Yes (Hospitalization, Disabling)
  Sender: FDA-Public Use
  Company Number: PHHO2006GB05531

PATIENT
  Age: 83 Year
  Sex: Female
  Weight: 43.6 kg

DRUGS (14)
  1. ZOLEDRONIC ACID [Suspect]
     Indication: OSTEOPOROTIC FRACTURE
     Dosage: DOUBLE-BLIND
     Route: 042
     Dates: start: 20040820
  2. ZOLEDRONIC ACID [Suspect]
     Dosage: 5MG, ONCE YEARLY
  3. CALCICHEW D3 [Concomitant]
     Indication: OSTEOPOROTIC FRACTURE
  4. SINEMET [Concomitant]
  5. ENTACAPONE [Concomitant]
  6. CABERGOLINE [Concomitant]
  7. OMEPRAZOLE [Concomitant]
  8. ASPIRIN [Concomitant]
  9. ACETAMINOPHEN [Concomitant]
  10. CODEINE [Concomitant]
  11. DILTIAZEM [Concomitant]
  12. NITROGLYCERIN [Concomitant]
  13. GAVISCON [Concomitant]
  14. RAMIPRIL [Suspect]
     Indication: HYPERTENSION
     Dosage: 25 MG, QD
     Route: 048
     Dates: start: 20060412, end: 20061213

REACTIONS (13)
  - CEREBRAL ATROPHY [None]
  - CEREBRAL ISCHAEMIA [None]
  - CEREBROVASCULAR DISORDER [None]
  - CONFUSIONAL STATE [None]
  - CONTUSION [None]
  - DISEASE PROGRESSION [None]
  - FALL [None]
  - HAEMATOMA [None]
  - MOBILITY DECREASED [None]
  - MUSCULOSKELETAL CHEST PAIN [None]
  - ORTHOSTATIC HYPOTENSION [None]
  - SKIN ULCER [None]
  - URINARY TRACT INFECTION [None]
